FAERS Safety Report 8883670 (Version 1)
Quarter: 2012Q4

REPORT INFORMATION
  Report Type: 
  Country: US (occurrence: US)
  Receive Date: 20121102
  Receipt Date: 20121102
  Transmission Date: 20130627
  Serious: No
  Sender: FDA-Public Use
  Company Number: US-ASTRAZENECA-2012SE79030

PATIENT
  Age: 44 Year
  Sex: Female
  Weight: 61.2 kg

DRUGS (7)
  1. SEROQUEL XR [Suspect]
     Indication: BIPOLAR DISORDER
     Route: 048
  2. SEROQUEL XR [Suspect]
     Indication: SCHIZOPHRENIA
     Route: 048
  3. SEROQUEL XR [Suspect]
     Indication: SLEEP DISORDER
     Route: 048
  4. LITHIUM CARBONATE [Concomitant]
     Route: 048
  5. CARBAMAZEPINE [Concomitant]
     Route: 048
  6. TRAMADOL [Concomitant]
     Indication: PAIN
     Dosage: 500-100 MG EVERY SIX HOURS AS REQUIRED
     Route: 048
  7. DIAZEPAM [Concomitant]
     Route: 048

REACTIONS (3)
  - Nasopharyngitis [Not Recovered/Not Resolved]
  - Rhinorrhoea [Not Recovered/Not Resolved]
  - Intentional drug misuse [Unknown]
